FAERS Safety Report 4721259-7 (Version None)
Quarter: 2005Q3

REPORT INFORMATION
  Report Type: 
  Country: None (occurrence: None)
  Receive Date: 20050722
  Receipt Date: 20050714
  Transmission Date: 20060218
  Serious: Yes (Hospitalization)
  Sender: FDA-Public Use
  Company Number: PHBS2005JP10100

PATIENT
  Age: 58 Year
  Sex: Female

DRUGS (1)
  1. LOPRESSOR [Suspect]
     Indication: CONGESTIVE CARDIOMYOPATHY
     Dosage: 240 MG/DAY
     Route: 048

REACTIONS (4)
  - BLOOD ALDOSTERONE DECREASED [None]
  - HYPERKALAEMIA [None]
  - RENIN DECREASED [None]
  - URINE POTASSIUM DECREASED [None]
